FAERS Safety Report 17013014 (Version 1)
Quarter: 2019Q4

REPORT INFORMATION
  Report Type: Spontaneous
  Country: US (occurrence: US)
  Receive Date: 20191001
  Receipt Date: 20191001
  Transmission Date: 20200122
  Serious: No
  Sender: FDA-Public Use
  Company Number: None

PATIENT
  Age: 63 Year
  Sex: Female

DRUGS (4)
  1. SYNTHROID [Concomitant]
     Active Substance: LEVOTHYROXINE SODIUM
  2. NORVASC [Concomitant]
     Active Substance: AMLODIPINE BESYLATE
  3. ERLOTINIB 150MG TAB [Suspect]
     Active Substance: ERLOTINIB
     Route: 048
     Dates: start: 20190520
  4. VITAMIN D [Concomitant]
     Active Substance: VITAMIN D NOS

REACTIONS (5)
  - Genital tract inflammation [None]
  - Dermatitis diaper [None]
  - Urine odour abnormal [None]
  - Rash [None]
  - Diarrhoea [None]

NARRATIVE: CASE EVENT DATE: 20191001
